FAERS Safety Report 6600978-1 (Version None)
Quarter: 2010Q1

REPORT INFORMATION
  Report Type: 
  Country: None (occurrence: None)
  Receive Date: 20100217
  Receipt Date: 20100201
  Transmission Date: 20100710
  Serious: Yes (Hospitalization, Other)
  Sender: FDA-Public Use
  Company Number: 2010000370

PATIENT
  Age: 51 Year
  Sex: Male
  Weight: 54.3 kg

DRUGS (11)
  1. ERLOTINIB (ERLOTINIB) (TABLET) (ERLOTINIB) [Suspect]
     Indication: LUNG ADENOCARCINOMA
     Dosage: 150 MG, QD, ORAL
     Route: 048
     Dates: start: 20090128, end: 20090216
  2. NOVAMIN (PROCHLORPERAZINE) [Concomitant]
  3. MAGNESIUM OXIDE (MAGNESIUM OXIDE) [Concomitant]
  4. NAIXAN (NAPROXEN SODIUM) [Concomitant]
  5. FAMOTIDINE [Concomitant]
  6. PHENYTOIN [Concomitant]
  7. URSODIOL [Concomitant]
  8. AMARYL [Concomitant]
  9. BASEN (VOGLIBOSE) [Concomitant]
  10. OXYCONTIN [Concomitant]
  11. FENTANYL-100 [Concomitant]

REACTIONS (2)
  - ANAEMIA [None]
  - DIARRHOEA [None]
